FAERS Safety Report 6781403-7 (Version None)
Quarter: 2010Q2

REPORT INFORMATION
  Report Type: 
  Country: None (occurrence: None)
  Receive Date: 20100621
  Receipt Date: 20100219
  Transmission Date: 20101027
  Serious: No
  Sender: FDA-Public Use
  Company Number: US-AMGEN-KDL395988

PATIENT
  Sex: Female

DRUGS (2)
  1. PROCRIT [Suspect]
     Indication: RENAL FAILURE CHRONIC
     Dates: start: 20030101, end: 20090801
  2. ARANESP [Suspect]
     Indication: RENAL FAILURE CHRONIC
     Dates: start: 20091001, end: 20091023

REACTIONS (2)
  - DERMATITIS [None]
  - SKIN HAEMORRHAGE [None]
